FAERS Safety Report 20702993 (Version 1)
Quarter: 2022Q2

REPORT INFORMATION
  Report Type: Report from Study
  Country: CA (occurrence: CA)
  Receive Date: 20220413
  Receipt Date: 20220413
  Transmission Date: 20220721
  Serious: Yes (Other)
  Sender: FDA-Public Use
  Company Number: CA-ABBVIE-22K-028-4353837-00

PATIENT
  Age: 68 Year
  Sex: Female
  Weight: 50.848 kg

DRUGS (1)
  1. HUMIRA [Suspect]
     Active Substance: ADALIMUMAB
     Indication: Crohn^s disease
     Route: 058
     Dates: start: 20190330

REACTIONS (7)
  - Stenosis [Unknown]
  - Malaise [Unknown]
  - Muscle spasms [Unknown]
  - Pain [Unknown]
  - Diarrhoea [Recovering/Resolving]
  - Illness [Unknown]
  - Weight decreased [Unknown]

NARRATIVE: CASE EVENT DATE: 20210501
